FAERS Safety Report 9093796 (Version 3)
Quarter: 2014Q1

REPORT INFORMATION
  Report Type: Spontaneous
  Country: DK (occurrence: DK)
  Receive Date: 20130218
  Receipt Date: 20140120
  Transmission Date: 20141002
  Serious: No
  Sender: FDA-Public Use
  Company Number: DK-ELI_LILLY_AND_COMPANY-DK201302002753

PATIENT
  Age: 35 Year
  Sex: Female

DRUGS (19)
  1. CYMBALTA [Suspect]
     Indication: DEPRESSION
     Dosage: 60 MG AM AND 120MG PM
     Route: 065
  2. CYMBALTA [Suspect]
     Indication: BACK PAIN
  3. CYMBALTA [Suspect]
     Indication: ANXIETY
  4. TRUXAL [Suspect]
     Indication: DEPRESSION
     Dosage: 25 MG, TID
     Route: 065
  5. TRUXAL [Suspect]
     Indication: ANXIETY
  6. CONTALGIN [Suspect]
     Indication: BACK PAIN
     Dosage: 10 MG, TID
     Route: 065
     Dates: start: 200605
  7. OXYCONTIN [Suspect]
     Indication: BACK PAIN
     Dosage: UNK
     Route: 065
     Dates: start: 200411
  8. OXYNORM [Suspect]
     Indication: BACK PAIN
     Dosage: UNK, UNKNOWN
     Route: 065
  9. SAROTEN [Suspect]
     Indication: DEPRESSION
     Dosage: 50 MG, EACH EVENING
     Route: 065
     Dates: start: 200511
  10. GABAPENTIN [Concomitant]
     Indication: BACK PAIN
     Dosage: UNK
     Dates: start: 200511, end: 200512
  11. RISPERDAL [Concomitant]
     Indication: ANXIETY
  12. EFEXOR [Concomitant]
     Indication: ANXIETY
  13. EFEXOR [Concomitant]
     Indication: DEPRESSION
  14. CIPRAMIL                           /00582602/ [Concomitant]
     Indication: ANXIETY
     Dosage: UNK
     Dates: start: 200412, end: 200610
  15. METHADONE [Concomitant]
     Indication: BACK PAIN
     Dosage: UNK
     Dates: start: 200511
  16. DOLOL [Concomitant]
     Indication: BACK PAIN
     Dosage: UNK
     Dates: start: 200903
  17. FENTANYL [Concomitant]
     Indication: BACK PAIN
     Dosage: UNK
     Dates: start: 200903
  18. PANODIL [Concomitant]
     Indication: BACK PAIN
     Dosage: 1000 MG, TID
  19. GLUCOSAMIN                         /00943605/ [Concomitant]
     Indication: BACK PAIN
     Dosage: UNK
     Dates: start: 200511, end: 200512

REACTIONS (4)
  - Dental caries [Not Recovered/Not Resolved]
  - Eating disorder [Unknown]
  - Social avoidant behaviour [Unknown]
  - Overdose [Unknown]
